FAERS Safety Report 5479915-1 (Version None)
Quarter: 2007Q4

REPORT INFORMATION
  Report Type: 
  Country: None (occurrence: None)
  Receive Date: 20071008
  Receipt Date: 20070924
  Transmission Date: 20080405
  Serious: No
  Sender: FDA-Public Use
  Company Number: US-BOEHRINGER INGELHEIM PHARMACEUTICALS, INC.-2007-BP-21645BP

PATIENT
  Sex: Male

DRUGS (2)
  1. APTIVUS/RITONAVIR CAPSULES [Suspect]
  2. TRUVADA [Suspect]

REACTIONS (1)
  - BLOOD BILIRUBIN INCREASED [None]
